FAERS Safety Report 16671078 (Version 1)
Quarter: 2019Q3

REPORT INFORMATION
  Report Type: Spontaneous
  Country: AU (occurrence: AU)
  Receive Date: 20190805
  Receipt Date: 20190805
  Transmission Date: 20191004
  Serious: Yes (Other)
  Sender: FDA-Public Use
  Company Number: AU-NALPROPION PHARMACEUTICALS INC.-2019-008139

PATIENT

DRUGS (1)
  1. CONTRAVE [Suspect]
     Active Substance: BUPROPION HYDROCHLORIDE\NALTREXONE HYDROCHLORIDE
     Indication: WEIGHT DECREASED
     Dosage: 98 MG, QD (1 IN 1 DAYS)
     Route: 065
     Dates: start: 20190721, end: 20190721

REACTIONS (9)
  - Syncope [Unknown]
  - Loss of consciousness [Unknown]
  - Dyspnoea [Unknown]
  - Tremor [Unknown]
  - General physical health deterioration [Unknown]
  - Headache [Unknown]
  - Screaming [Unknown]
  - Thinking abnormal [Unknown]
  - Dizziness [Unknown]

NARRATIVE: CASE EVENT DATE: 20190721
